FAERS Safety Report 17064603 (Version 1)
Quarter: 2019Q4

REPORT INFORMATION
  Report Type: Spontaneous
  Country: US (occurrence: US)
  Receive Date: 20191122
  Receipt Date: 20191122
  Transmission Date: 20200122
  Serious: Yes (Other)
  Sender: FDA-Public Use
  Company Number: US-PFIZER INC-2019503715

PATIENT
  Age: 67 Year
  Sex: Male
  Weight: 79.38 kg

DRUGS (2)
  1. PREGABALIN. [Suspect]
     Active Substance: PREGABALIN
     Indication: ARTHRITIS
     Dosage: 75 MG, 2X/DAY
     Route: 048
     Dates: start: 20191112
  2. PREGABALIN. [Suspect]
     Active Substance: PREGABALIN
     Indication: BACK PAIN

REACTIONS (3)
  - Drug dependence [Unknown]
  - Drug ineffective [Unknown]
  - Memory impairment [Not Recovered/Not Resolved]

NARRATIVE: CASE EVENT DATE: 20191112
